FAERS Safety Report 6443939-8 (Version None)
Quarter: 2009Q4

REPORT INFORMATION
  Report Type: 
  Country: None (occurrence: None)
  Receive Date: 20091113
  Receipt Date: 20091106
  Transmission Date: 20100525
  Serious: Yes (Other)
  Sender: FDA-Public Use
  Company Number: 2009SP035018

PATIENT
  Age: 17 Year
  Sex: Female

DRUGS (1)
  1. IMPLANON [Suspect]
     Indication: CONTRACEPTION
     Dates: start: 20091102

REACTIONS (5)
  - CONTUSION [None]
  - CONVULSION [None]
  - INSOMNIA [None]
  - PAIN [None]
  - SKIN DISCOLOURATION [None]
